FAERS Safety Report 10406341 (Version 1)
Quarter: 2014Q3

REPORT INFORMATION
  Report Type: Spontaneous
  Country: US (occurrence: None)
  Receive Date: 20140822
  Receipt Date: 20140822
  Transmission Date: 20150326
  Serious: No
  Sender: FDA-Public Use
  Company Number: None

PATIENT
  Sex: Male

DRUGS (8)
  1. SOVALDI [Suspect]
     Active Substance: SOFOSBUVIR
     Indication: HEPATITIS C
     Route: 048
     Dates: start: 20140708
  2. CENTRUM [Concomitant]
     Active Substance: VITAMINS
  3. MAXZIDE [Concomitant]
     Active Substance: HYDROCHLOROTHIAZIDE\TRIAMTERENE
  4. PREDNISONE. [Concomitant]
     Active Substance: PREDNISONE
  5. RIBAVIRIN. [Concomitant]
     Active Substance: RIBAVIRIN
  6. ATENOLOL. [Concomitant]
     Active Substance: ATENOLOL
  7. ASA 81MG? [Concomitant]
  8. LISINOPRIL. [Concomitant]
     Active Substance: LISINOPRIL

REACTIONS (4)
  - Nausea [None]
  - Asthenia [None]
  - Fatigue [None]
  - Weight decreased [None]
